FAERS Safety Report 6150782-6 (Version None)
Quarter: 2009Q2

REPORT INFORMATION
  Report Type: 
  Country: None (occurrence: None)
  Receive Date: 20090409
  Receipt Date: 20090325
  Transmission Date: 20091009
  Serious: Yes (Other)
  Sender: FDA-Public Use
  Company Number: US-GENENTECH-280732

PATIENT

DRUGS (1)
  1. ACTIVASE [Suspect]
     Indication: CEREBRAL HAEMORRHAGE
     Dosage: 2 MG, Q12H

REACTIONS (1)
  - CNS VENTRICULITIS [None]
